FAERS Safety Report 10473422 (Version 2)
Quarter: 2015Q3

REPORT INFORMATION
  Report Type: Spontaneous
  Country: US (occurrence: US)
  Receive Date: 20140924
  Receipt Date: 20150717
  Transmission Date: 20151125
  Serious: Yes (Hospitalization, Other)
  Sender: FDA-Public Use
  Company Number: US-ASTRAZENECA-2014SE69071

PATIENT
  Age: 65 Year
  Sex: Male
  Weight: 103.4 kg

DRUGS (28)
  1. METFORMIN-GLYBURIDE [Concomitant]
     Indication: DIABETES MELLITUS
     Dosage: 2.5MG-500MG BID
     Dates: start: 1999
  2. WARFARIN [Concomitant]
     Active Substance: WARFARIN
     Indication: COAGULOPATHY
     Dosage: 5 MG FRWK
     Route: 048
     Dates: start: 20141003
  3. SELENIUM [Concomitant]
     Active Substance: SELENIUM
     Indication: SUPPLEMENTATION THERAPY
     Dosage: 100 MG HS
     Route: 048
     Dates: start: 2014
  4. L-ARGININE [Concomitant]
     Active Substance: ARGININE
     Indication: SUPPLEMENTATION THERAPY
     Route: 048
     Dates: start: 2014
  5. BRILINTA [Suspect]
     Active Substance: TICAGRELOR
     Indication: STENT PLACEMENT
     Route: 048
     Dates: start: 201407
  6. BRILINTA [Interacting]
     Active Substance: TICAGRELOR
     Indication: ACUTE CORONARY SYNDROME
     Route: 048
     Dates: start: 201407
  7. BRILINTA [Interacting]
     Active Substance: TICAGRELOR
     Indication: STENT PLACEMENT
     Route: 048
     Dates: start: 201408
  8. BRILINTA [Interacting]
     Active Substance: TICAGRELOR
     Indication: STENT PLACEMENT
     Route: 048
     Dates: start: 20140910
  9. PROBIOTIC [Concomitant]
     Active Substance: PROBIOTICS NOS
     Indication: SUPPLEMENTATION THERAPY
     Dates: start: 2014
  10. BRILINTA [Interacting]
     Active Substance: TICAGRELOR
     Indication: COAGULOPATHY
     Route: 048
     Dates: start: 20140910
  11. VITAMIN C [Concomitant]
     Active Substance: ASCORBIC ACID
     Indication: SUPPLEMENTATION THERAPY
     Route: 048
     Dates: start: 2014
  12. MAGNESIUM [Concomitant]
     Active Substance: MAGNESIUM
     Indication: SUPPLEMENTATION THERAPY
     Route: 048
     Dates: start: 2014
  13. LEVEMIR [Concomitant]
     Active Substance: INSULIN DETEMIR
     Indication: DIABETES MELLITUS
     Dosage: 40U AM 20UPM BID
     Route: 050
  14. LEVEMIR [Concomitant]
     Active Substance: INSULIN DETEMIR
     Indication: DIABETES MELLITUS
     Dates: start: 1999
  15. WARFARIN [Concomitant]
     Active Substance: WARFARIN
     Indication: COAGULOPATHY
     Dosage: 5 MG FRWK
     Route: 048
     Dates: start: 20141003
  16. WARFARIN [Concomitant]
     Active Substance: WARFARIN
     Indication: COAGULOPATHY
     Dosage: 2.5 MG TIWK
     Route: 048
     Dates: start: 20141003
  17. BRILINTA [Interacting]
     Active Substance: TICAGRELOR
     Indication: ACUTE CORONARY SYNDROME
     Route: 048
     Dates: start: 201408
  18. DULCOLAX [Interacting]
     Active Substance: BISACODYL OR DOCUSATE SODIUM
     Indication: CONSTIPATION
     Route: 065
     Dates: start: 201409
  19. NOVALOG [Concomitant]
     Indication: DIABETES MELLITUS
     Dosage: UNK AC
     Route: 058
  20. GABAPENTIN. [Concomitant]
     Active Substance: GABAPENTIN
     Indication: NEURALGIA
     Route: 048
     Dates: start: 2005
  21. BRILINTA [Interacting]
     Active Substance: TICAGRELOR
     Indication: COAGULOPATHY
     Route: 048
     Dates: start: 201407
  22. BRILINTA [Interacting]
     Active Substance: TICAGRELOR
     Indication: COAGULOPATHY
     Route: 048
     Dates: start: 201408
  23. BRILINTA [Interacting]
     Active Substance: TICAGRELOR
     Indication: ACUTE CORONARY SYNDROME
     Route: 048
     Dates: start: 20140910
  24. NEURONTIN [Concomitant]
     Active Substance: GABAPENTIN
     Indication: DIABETIC NEUROPATHY
     Dosage: UNK TID
     Route: 048
  25. WARFARIN [Concomitant]
     Active Substance: WARFARIN
     Indication: COAGULOPATHY
     Dosage: 2.5 MG TIWK
     Route: 048
     Dates: start: 20141003
  26. ASPIRIN. [Concomitant]
     Active Substance: ASPIRIN
     Indication: COAGULOPATHY
     Route: 048
     Dates: start: 201407
  27. CAVEDILOL [Concomitant]
     Active Substance: CARVEDILOL
     Indication: CARDIAC DISORDER
     Dosage: 3.125 MG BID
     Route: 048
     Dates: start: 2010
  28. VITAMIN D [Concomitant]
     Active Substance: CHOLECALCIFEROL
     Indication: SUPPLEMENTATION THERAPY
     Route: 048
     Dates: start: 2014

REACTIONS (5)
  - Muscle spasms [Recovered/Resolved]
  - Dyspepsia [Unknown]
  - Constipation [Unknown]
  - Drug interaction [Unknown]
  - Thrombosis [Unknown]

NARRATIVE: CASE EVENT DATE: 2014
